FAERS Safety Report 6178098-2 (Version None)
Quarter: 2009Q2

REPORT INFORMATION
  Report Type: 
  Country: None (occurrence: None)
  Receive Date: 20090504
  Receipt Date: 20090408
  Transmission Date: 20091009
  Serious: No
  Sender: FDA-Public Use
  Company Number: US-BAYER-200917542NA

PATIENT
  Age: 56 Year
  Sex: Female
  Weight: 61 kg

DRUGS (5)
  1. CLIMARA [Suspect]
     Indication: HYSTERECTOMY
     Dosage: CONTINUOUS DELIVERY FOR ONCE WEEKLY APPLICATION
     Route: 062
  2. ALKA SELTZER [Suspect]
  3. IMITREX [Concomitant]
     Indication: HEADACHE
  4. ATIVAN [Concomitant]
  5. AMBIEN [Concomitant]

REACTIONS (5)
  - CONFUSIONAL STATE [None]
  - DEVICE ADHESION ISSUE [None]
  - HEADACHE [None]
  - MALAISE [None]
  - PALPITATIONS [None]
